FAERS Safety Report 19853860 (Version 1)
Quarter: 2021Q3

REPORT INFORMATION
  Report Type: Spontaneous
  Country: PH (occurrence: PH)
  Receive Date: 20210920
  Receipt Date: 20210920
  Transmission Date: 20211014
  Serious: Yes (Death)
  Sender: FDA-Public Use
  Company Number: PH-ROCHE-2894612

PATIENT
  Age: 71 Year
  Sex: Female

DRUGS (1)
  1. ACTEMRA [Suspect]
     Active Substance: TOCILIZUMAB
     Indication: COVID-19
     Dosage: 20 MG/ML VIAL
     Route: 065

REACTIONS (2)
  - Death [Fatal]
  - Off label use [Unknown]
